FAERS Safety Report 21556449 (Version 1)
Quarter: 2022Q4

REPORT INFORMATION
  Report Type: Spontaneous
  Country: US (occurrence: None)
  Receive Date: 20221104
  Receipt Date: 20221104
  Transmission Date: 20230112
  Serious: Yes (unspecified)
  Sender: FDA-Public Use
  Company Number: None

PATIENT
  Age: 46 Year
  Sex: Female
  Weight: 76.5 kg

DRUGS (2)
  1. FLUTICASONE PROPIONATE [Suspect]
     Active Substance: FLUTICASONE PROPIONATE
     Indication: Seasonal allergy
     Dosage: OTHER STRENGTH : MCG;?OTHER QUANTITY : 2 SPRAY(S);?FREQUENCY : DAILY;?OTHER ROUTE : INTRANASAL;?
     Route: 050
     Dates: start: 20221023, end: 20221030
  2. FLUTICASONE PROPIONATE [Suspect]
     Active Substance: FLUTICASONE PROPIONATE
     Indication: Multiple allergies

REACTIONS (5)
  - Anxiety [None]
  - Panic attack [None]
  - Insomnia [None]
  - Energy increased [None]
  - Sensory disturbance [None]

NARRATIVE: CASE EVENT DATE: 20221023
